FAERS Safety Report 4479051-7 (Version None)
Quarter: 2004Q4

REPORT INFORMATION
  Report Type: 
  Country: None (occurrence: None)
  Receive Date: 20040923
  Receipt Date: 20040708
  Transmission Date: 20050328
  Serious: No
  Sender: FDA-Public Use
  Company Number: 207704

PATIENT
  Age: 86 Year
  Sex: Female

DRUGS (2)
  1. AVASTIN [Suspect]
     Indication: COLORECTAL CANCER METASTATIC
     Dosage: INTRAVENOUS
     Route: 042
     Dates: start: 20040602
  2. CHEMO ADMINISTERED REGIMEN UNKNOWN (GENERIC COMPONENT(S) NOT KNOWN) [Concomitant]

REACTIONS (1)
  - EPISTAXIS [None]
